FAERS Safety Report 4728308-0 (Version None)
Quarter: 2005Q3

REPORT INFORMATION
  Report Type: 
  Country: None (occurrence: None)
  Receive Date: 20050727
  Receipt Date: 20050715
  Transmission Date: 20060218
  Serious: Yes (Hospitalization, Other)
  Sender: FDA-Public Use
  Company Number: US143046

PATIENT
  Sex: Female

DRUGS (10)
  1. ARANESP [Suspect]
     Indication: RENAL TRANSPLANT
     Dosage: 30 MCG, 1 IN 1 WEEKS
  2. AZATHIOPRINE [Concomitant]
  3. PREDNISOLONE [Concomitant]
  4. RANITIDINE [Concomitant]
  5. SODIUM BICARBONATE [Concomitant]
  6. IRON [Concomitant]
  7. FOLATE SODIUM [Concomitant]
  8. LABETALOL [Concomitant]
  9. BETAMETHASONE [Concomitant]
  10. METHYLOPA [Concomitant]

REACTIONS (3)
  - CAESAREAN SECTION [None]
  - HYPERTENSION [None]
  - PREMATURE LABOUR [None]
